FAERS Safety Report 25670203 (Version 1)
Quarter: 2025Q3

REPORT INFORMATION
  Report Type: Report from Study
  Country: US (occurrence: US)
  Receive Date: 20250812
  Receipt Date: 20250812
  Transmission Date: 20251021
  Serious: Yes (Hospitalization)
  Sender: ACADIA PHARMACEUTICALS
  Company Number: US-ACADIA PHARMACEUTICALS INC.-ACA-2025-PIM-009099

PATIENT
  Age: 85 Year
  Sex: Male

DRUGS (13)
  1. NUPLAZID [Suspect]
     Active Substance: PIMAVANSERIN TARTRATE
     Indication: Hallucination
     Dosage: 34 MILLIGRAM, QD
     Route: 048
     Dates: start: 20240404
  2. NUPLAZID [Suspect]
     Active Substance: PIMAVANSERIN TARTRATE
     Indication: Parkinson^s disease
  3. ACETAMINOPHEN [Concomitant]
     Active Substance: ACETAMINOPHEN
  4. ASPIRIN [Concomitant]
     Active Substance: ASPIRIN
  5. CARBIDOPA\LEVODOPA [Concomitant]
     Active Substance: CARBIDOPA\LEVODOPA
  6. VITAMIN B12 [Concomitant]
     Active Substance: CYANOCOBALAMIN
  7. DOCUSATE SODIUM [Concomitant]
     Active Substance: DOCUSATE SODIUM
  8. FOLIC ACID [Concomitant]
     Active Substance: FOLIC ACID
  9. IBUPROFEN [Concomitant]
     Active Substance: IBUPROFEN
  10. MICONAZORB AF [Concomitant]
     Active Substance: MICONAZOLE NITRATE
  11. RIVASTIGMINE [Concomitant]
     Active Substance: RIVASTIGMINE
  12. TAMSULOSIN [Concomitant]
     Active Substance: TAMSULOSIN
  13. Ocusoft Lid Scrub Plus Pad [Concomitant]
     Dates: end: 20250212

REACTIONS (1)
  - Infection [Recovering/Resolving]

NARRATIVE: CASE EVENT DATE: 20250806
